FAERS Safety Report 9027169 (Version 1)
Quarter: 2013Q1

REPORT INFORMATION
  Report Type: Spontaneous
  Country: JP (occurrence: JP)
  Receive Date: 20130123
  Receipt Date: 20130123
  Transmission Date: 20140127
  Serious: Yes (Other)
  Sender: FDA-Public Use
  Company Number: JP-GLAXOSMITHKLINE-B0855481A

PATIENT
  Sex: Male

DRUGS (1)
  1. TYKERB [Suspect]
     Indication: BREAST CANCER
     Route: 048

REACTIONS (1)
  - Skin disorder [Recovered/Resolved]
